FAERS Safety Report 10195880 (Version 1)
Quarter: 2014Q2

REPORT INFORMATION
  Report Type: Spontaneous
  Country: JP (occurrence: None)
  Receive Date: 20140522
  Receipt Date: 20140522
  Transmission Date: 20141212
  Serious: Yes (Death, Other)
  Sender: FDA-Public Use
  Company Number: FK201401769

PATIENT
  Age: 72 Year
  Sex: Male

DRUGS (3)
  1. CARBOPLATIN (MANUFACTURER UNKNOWN) (CARBOPLATIN) (CARBOPLATIN) [Suspect]
     Indication: LUNG SQUAMOUS CELL CARCINOMA STAGE III
  2. PACLITAXEL (PACLITAXEL) (PACLITAXEL) [Suspect]
     Indication: LUNG SQUAMOUS CELL CARCINOMA STAGE III
  3. HYDROCORTISONE (HYDROCORTISONE) [Concomitant]

REACTIONS (9)
  - Septic shock [None]
  - Ileus [None]
  - Febrile neutropenia [None]
  - Pancytopenia [None]
  - Blood sodium decreased [None]
  - Haemodynamic instability [None]
  - Candida infection [None]
  - Large intestinal haemorrhage [None]
  - Necrotising colitis [None]
